FAERS Safety Report 11371623 (Version 2)
Quarter: 2016Q2

REPORT INFORMATION
  Report Type: Spontaneous
  Country: US (occurrence: US)
  Receive Date: 20150812
  Receipt Date: 20160630
  Transmission Date: 20160815
  Serious: No
  Sender: FDA-Public Use
  Company Number: GXBR2014US002561

PATIENT
  Sex: Female

DRUGS (2)
  1. CLONAZEPAM TABLETS, USP [Suspect]
     Active Substance: CLONAZEPAM
     Dosage: 0.25 MG (1/2 OF A .05 MG), QD
     Route: 048
  2. CLONAZEPAM TABLETS, USP [Suspect]
     Active Substance: CLONAZEPAM
     Indication: NECK PAIN
     Dosage: 0.25 MG (1/2 OF A 0.5 MG TABLETE), QD
     Route: 048

REACTIONS (6)
  - Drug effect decreased [Unknown]
  - Neck pain [Unknown]
  - Malaise [Unknown]
  - Drug withdrawal syndrome [Unknown]
  - Nervousness [Unknown]
  - Somnolence [Unknown]
